FAERS Safety Report 8034606-8 (Version None)
Quarter: 2012Q1

REPORT INFORMATION
  Report Type: 
  Country: None (occurrence: None)
  Receive Date: 20120110
  Receipt Date: 20120103
  Transmission Date: 20120608
  Serious: Yes (Other)
  Sender: FDA-Public Use
  Company Number: FR-RB-036142-12

PATIENT
  Sex: Female

DRUGS (1)
  1. SUBUTEX [Suspect]
     Indication: PRODUCT USED FOR UNKNOWN INDICATION
     Dosage: UNKNOWN DOSAGE DETAILS
     Route: 064
     Dates: start: 20051001, end: 20060111

REACTIONS (3)
  - ABNORMAL BEHAVIOUR [None]
  - DRUG WITHDRAWAL SYNDROME NEONATAL [None]
  - GROWTH RETARDATION [None]
